FAERS Safety Report 20828984 (Version 11)
Quarter: 2025Q1

REPORT INFORMATION
  Report Type: Report from Study
  Country: BR (occurrence: BR)
  Receive Date: 20220513
  Receipt Date: 20250211
  Transmission Date: 20250408
  Serious: Yes (Life-Threatening, Hospitalization, Other)
  Sender: TAKEDA
  Company Number: BR-TAKEDA-2022TUS006040

PATIENT
  Age: 61 Year
  Sex: Female
  Weight: 52 kg

DRUGS (22)
  1. HUMAN IMMUNOGLOBULIN G\HYALURONIDASE RECOMBINANT HUMAN [Suspect]
     Active Substance: HUMAN IMMUNOGLOBULIN G\HYALURONIDASE (HUMAN RECOMBINANT)
     Indication: Immunodeficiency
  2. HUMAN IMMUNOGLOBULIN G\HYALURONIDASE RECOMBINANT HUMAN [Suspect]
     Active Substance: HUMAN IMMUNOGLOBULIN G\HYALURONIDASE (HUMAN RECOMBINANT)
     Indication: Primary immunodeficiency syndrome
  3. HUMAN IMMUNOGLOBULIN G\HYALURONIDASE RECOMBINANT HUMAN [Suspect]
     Active Substance: HUMAN IMMUNOGLOBULIN G\HYALURONIDASE (HUMAN RECOMBINANT)
     Dosage: UNK, UNK, Q4WEEKS
  4. HUMAN IMMUNOGLOBULIN G\HYALURONIDASE RECOMBINANT HUMAN [Suspect]
     Active Substance: HUMAN IMMUNOGLOBULIN G\HYALURONIDASE (HUMAN RECOMBINANT)
     Dosage: 30 GRAM, Q4WEEKS
  5. HUMAN IMMUNOGLOBULIN G\HYALURONIDASE RECOMBINANT HUMAN [Suspect]
     Active Substance: HUMAN IMMUNOGLOBULIN G\HYALURONIDASE (HUMAN RECOMBINANT)
     Dosage: 40 GRAM, Q4WEEKS
     Dates: start: 20210317
  6. HUMAN IMMUNOGLOBULIN G\HYALURONIDASE RECOMBINANT HUMAN [Suspect]
     Active Substance: HUMAN IMMUNOGLOBULIN G\HYALURONIDASE (HUMAN RECOMBINANT)
  7. HUMAN IMMUNOGLOBULIN G\HYALURONIDASE RECOMBINANT HUMAN [Suspect]
     Active Substance: HUMAN IMMUNOGLOBULIN G\HYALURONIDASE (HUMAN RECOMBINANT)
     Dosage: 400 MILLIGRAM, Q4WEEKS
  8. HUMAN IMMUNOGLOBULIN G\HYALURONIDASE RECOMBINANT HUMAN [Suspect]
     Active Substance: HUMAN IMMUNOGLOBULIN G\HYALURONIDASE (HUMAN RECOMBINANT)
     Dosage: 40 GRAM, Q4WEEKS
     Dates: start: 202307
  9. HUMAN IMMUNOGLOBULIN G\HYALURONIDASE RECOMBINANT HUMAN [Suspect]
     Active Substance: HUMAN IMMUNOGLOBULIN G\HYALURONIDASE (HUMAN RECOMBINANT)
     Dosage: 40 GRAM, Q4WEEKS
  10. NIMESULIDE [Suspect]
     Active Substance: NIMESULIDE
     Indication: Viral infection
  11. PREGABALIN [Concomitant]
     Active Substance: PREGABALIN
     Indication: Fibromyalgia
  12. PREGABALIN [Concomitant]
     Active Substance: PREGABALIN
     Indication: Osteoarthritis
  13. AMITRIPTYLINE [Concomitant]
     Active Substance: AMITRIPTYLINE
     Indication: Fibromyalgia
  14. AMITRIPTYLINE [Concomitant]
     Active Substance: AMITRIPTYLINE
     Indication: Osteoarthritis
  15. ALPRAZOLAM [Concomitant]
     Active Substance: ALPRAZOLAM
     Indication: Fibromyalgia
  16. ALPRAZOLAM [Concomitant]
     Active Substance: ALPRAZOLAM
     Indication: Osteoarthritis
  17. BIVOLET [Concomitant]
     Indication: Blood pressure abnormal
  18. CORDAREX [Concomitant]
     Active Substance: AMIODARONE
     Indication: Blood pressure abnormal
  19. Alenia [Concomitant]
     Indication: Asthma
     Dosage: UNK UNK, Q12H
  20. Alenia [Concomitant]
     Indication: Dyspnoea
  21. DYMISTA [Concomitant]
     Active Substance: AZELASTINE HYDROCHLORIDE\FLUTICASONE PROPIONATE
     Indication: Bronchiectasis
  22. VITAMIN D3 [Concomitant]
     Active Substance: CHOLECALCIFEROL

REACTIONS (51)
  - Sepsis [Unknown]
  - Infection [Recovered/Resolved]
  - Pneumonia [Unknown]
  - Spinal fracture [Unknown]
  - Bronchiolitis [Unknown]
  - Oedema peripheral [Unknown]
  - Thrombosis [Unknown]
  - Varices oesophageal [Recovering/Resolving]
  - Post procedural haemorrhage [Recovered/Resolved]
  - Arthritis [Recovered/Resolved]
  - Fibromyalgia [Recovered/Resolved]
  - Application site reaction [Recovering/Resolving]
  - Vaginal oedema [Recovered/Resolved]
  - Blood pressure increased [Recovered/Resolved]
  - Malaise [Recovered/Resolved]
  - Pyrexia [Recovered/Resolved]
  - Abdominal pain [Not Recovered/Not Resolved]
  - Speech disorder [Unknown]
  - Abdominal discomfort [Unknown]
  - Sneezing [Unknown]
  - Pain [Unknown]
  - Frequent bowel movements [Not Recovered/Not Resolved]
  - Therapeutic product effect delayed [Unknown]
  - Application site haematoma [Unknown]
  - Illness anxiety disorder [Unknown]
  - Viral infection [Recovering/Resolving]
  - Sinusitis [Recovering/Resolving]
  - Influenza [Unknown]
  - Obstruction [Unknown]
  - Weight increased [Unknown]
  - Wheezing [Unknown]
  - Osteopenia [Unknown]
  - Sensitivity to weather change [Unknown]
  - Bladder discomfort [Not Recovered/Not Resolved]
  - Defaecation urgency [Unknown]
  - Micturition urgency [Unknown]
  - Product use issue [Unknown]
  - Inappropriate schedule of product administration [Recovered/Resolved]
  - Product prescribing issue [Unknown]
  - Discomfort [Unknown]
  - Anxiety [Unknown]
  - Cough [Unknown]
  - Migraine [Recovered/Resolved]
  - Abdominal distension [Unknown]
  - Influenza like illness [Unknown]
  - Dyspnoea [Unknown]
  - Fatigue [Unknown]
  - Hypersensitivity [Unknown]
  - Headache [Not Recovered/Not Resolved]
  - Oedema [Unknown]
  - Swelling [Not Recovered/Not Resolved]

NARRATIVE: CASE EVENT DATE: 20220301
